FAERS Safety Report 10271043 (Version 1)
Quarter: 2014Q1

REPORT INFORMATION
  Report Type: Spontaneous
  Country: US (occurrence: None)
  Receive Date: 20140306
  Receipt Date: 20140306
  Transmission Date: 20141002
  Serious: Yes (Hospitalization)
  Sender: FDA-Public Use
  Company Number: 163-21880-13082606

PATIENT
  Age: 68 Year
  Sex: Male
  Weight: 109.8 kg

DRUGS (12)
  1. REVLIMID (LENALIDOMIDE) (25 MILLIGRAM, CAPSULES) [Suspect]
     Indication: PLASMA CELL MYELOMA
     Route: 048
     Dates: start: 201101
  2. ALLEGRA (FEXOFENADINE HYDROCHLORIDE) (UNKNOWN) [Concomitant]
  3. MAXALT (RIZATRIPTAN BENZOATE) (UNKNOWN) [Concomitant]
  4. CITRACAL PLUS (CALCIUM CITRATE W/COLECALCIFEROL) (UNKNOWN) [Concomitant]
  5. ASPIRINE (ACETYLSALICYLIC ACID) (UNKNOWN) [Concomitant]
  6. BENADRYL (BENADRYL ALLERGY) (UNKNOWN) [Concomitant]
  7. DEXAMETHASONE (DEXAMETHASONE) (UNKNOWN) [Concomitant]
  8. XANAX (ALPRAZOLAM) (UNKNOWN) [Concomitant]
  9. MSM GLUCOSAMINE (GLUCOSAMINE W/METHYLSULFONYLMETHANE) (UNKNOWN) [Concomitant]
  10. NEXIUM (ESOMEPRAZOLE) (UNKNOWN) [Concomitant]
  11. FLOMAX (TAMSULOSIN HYDROCHLORIDE) (UNKNOWN) [Concomitant]
  12. LISINOPRIL (LISINOPRIL) (UNKNOWN) [Concomitant]

REACTIONS (2)
  - Pulmonary embolism [None]
  - Deep vein thrombosis [None]
